FAERS Safety Report 10049286 (Version 2)
Quarter: 2014Q2

REPORT INFORMATION
  Report Type: Spontaneous
  Country: US (occurrence: US)
  Receive Date: 20140401
  Receipt Date: 20140416
  Transmission Date: 20141212
  Serious: No
  Sender: FDA-Public Use
  Company Number: US-BIOGENIDEC-2014BI003970

PATIENT
  Age: 45 Year
  Sex: Female
  Weight: 85 kg

DRUGS (7)
  1. AVONEX [Suspect]
     Indication: MULTIPLE SCLEROSIS
     Route: 030
     Dates: start: 20121020
  2. AVONEX [Suspect]
     Indication: MULTIPLE SCLEROSIS
     Route: 030
     Dates: end: 20131228
  3. BACLOFEN [Concomitant]
     Indication: MUSCLE SPASTICITY
  4. AMANTADINE [Concomitant]
     Indication: FATIGUE
  5. DIAZEPAM [Concomitant]
  6. DIAZEPAM [Concomitant]
  7. B12 [Concomitant]
     Route: 048

REACTIONS (7)
  - Swelling [Unknown]
  - Influenza like illness [Recovered/Resolved]
  - Pain [Recovered/Resolved]
  - Pyrexia [Unknown]
  - Chills [Unknown]
  - Musculoskeletal disorder [Recovered/Resolved]
  - Malaise [Not Recovered/Not Resolved]
